FAERS Safety Report 14767781 (Version 1)
Quarter: 2018Q2

REPORT INFORMATION
  Report Type: Spontaneous
  Country: CZ (occurrence: CZ)
  Receive Date: 20180417
  Receipt Date: 20180417
  Transmission Date: 20180711
  Serious: Yes (Other)
  Sender: FDA-Public Use
  Company Number: CZ-SUN PHARMACEUTICAL INDUSTRIES LTD-2018RR-170045

PATIENT
  Age: 58 Year
  Sex: Male

DRUGS (15)
  1. HUMULIN R [Concomitant]
     Active Substance: INSULIN HUMAN
     Indication: TYPE 2 DIABETES MELLITUS
     Dosage: 8 IU, QD
     Route: 058
  2. AGEN [Suspect]
     Active Substance: AMLODIPINE BESYLATE
     Indication: CARDIAC FAILURE ACUTE
     Dosage: 10 OT, QD ()
     Route: 065
     Dates: start: 200404, end: 2004
  3. HUMULIN R [Concomitant]
     Active Substance: INSULIN HUMAN
     Dosage: 16 IU, QD
     Route: 058
  4. HUMULIN R [Concomitant]
     Active Substance: INSULIN HUMAN
     Indication: TYPE 2 DIABETES MELLITUS
     Dosage: 20 IU, QD
     Route: 058
  5. HUMULIN R [Concomitant]
     Active Substance: INSULIN HUMAN
     Dosage: 8 IU, QD
     Route: 058
  6. HUMULIN R [Concomitant]
     Active Substance: INSULIN HUMAN
     Dosage: 20-8-8 IU ()
     Dates: start: 2004
  7. HUMULIN R [Concomitant]
     Active Substance: INSULIN HUMAN
     Dosage: 8 IU, QHS
     Route: 058
  8. HUMULIN N [Concomitant]
     Active Substance: INSULIN HUMAN
     Indication: TYPE 2 DIABETES MELLITUS
     Dosage: 12 IU, QHS
     Route: 058
  9. VEROSPIRONE [Suspect]
     Active Substance: SPIRONOLACTONE
     Indication: CARDIAC FAILURE ACUTE
     Dosage: 25 MG, BID
     Route: 065
     Dates: start: 200404, end: 2004
  10. HUMULIN R [Concomitant]
     Active Substance: INSULIN HUMAN
     Dosage: 16 IU, QHS
     Route: 058
  11. HUMULIN R [Concomitant]
     Active Substance: INSULIN HUMAN
     Dosage: 16-8-9 IU ()
     Route: 058
     Dates: start: 2004
  12. ATORVASTATIN [Suspect]
     Active Substance: ATORVASTATIN
     Indication: CARDIAC FAILURE ACUTE
     Dosage: 10 MG, QHS
     Route: 065
     Dates: start: 200404
  13. CONCOR COR [Suspect]
     Active Substance: BISOPROLOL FUMARATE
     Indication: CARDIAC FAILURE ACUTE
     Dosage: 1-0-1/2 5 MG, UNK
     Route: 065
     Dates: start: 200404, end: 2004
  14. FURON [Suspect]
     Active Substance: FUROSEMIDE
     Indication: CARDIAC FAILURE ACUTE
     Dosage: 40 MG, QD
     Route: 065
     Dates: start: 200404, end: 2004
  15. HUMULIN N [Concomitant]
     Active Substance: INSULIN HUMAN
     Indication: TYPE 2 DIABETES MELLITUS
     Dosage: 12 IU, QHS
     Route: 058
     Dates: start: 2004

REACTIONS (3)
  - Hypertension [Unknown]
  - Dyspnoea [Recovered/Resolved]
  - Pulmonary oedema [Recovered/Resolved]

NARRATIVE: CASE EVENT DATE: 2004
